FAERS Safety Report 9075166 (Version 1)
Quarter: 2013Q1

REPORT INFORMATION
  Report Type: Report from Study
  Country: US (occurrence: US)
  Receive Date: 20130129
  Receipt Date: 20130129
  Transmission Date: 20140127
  Serious: No
  Sender: FDA-Public Use
  Company Number: US-ABBOTT-12P-163-0925811-00

PATIENT
  Sex: Female
  Weight: 74.91 kg

DRUGS (3)
  1. HUMIRA 40 MG/0.8 ML PEN [Suspect]
     Indication: RHEUMATOID ARTHRITIS
     Dates: start: 2010
  2. HUMIRA 40 MG/0.8 ML PEN [Suspect]
     Dates: end: 201107
  3. HUMIRA 40 MG/0.8 ML PEN [Suspect]
     Dosage: 1X/WEEK OFF AND ON
     Dates: start: 201109

REACTIONS (6)
  - Cystitis interstitial [Unknown]
  - Cystitis noninfective [Unknown]
  - Bladder pain [Recovering/Resolving]
  - Cystitis [Unknown]
  - Arthralgia [Unknown]
  - Drug ineffective [Unknown]
